FAERS Safety Report 11265880 (Version 2)
Quarter: 2015Q4

REPORT INFORMATION
  Report Type: Spontaneous
  Country: IL (occurrence: IL)
  Receive Date: 20150713
  Receipt Date: 20151111
  Transmission Date: 20160304
  Serious: Yes (Other)
  Sender: FDA-Public Use
  Company Number: IL-SA-2015SA099694

PATIENT
  Age: 44 Year
  Sex: Male

DRUGS (4)
  1. AERIUS [Suspect]
     Active Substance: DESLORATADINE
     Route: 065
  2. MIZOLLEN [Suspect]
     Active Substance: MIZOLASTINE
     Indication: URTICARIA
     Route: 065
  3. MIZOLLEN [Suspect]
     Active Substance: MIZOLASTINE
     Indication: URTICARIA
     Route: 065
  4. FEXOFENADINE [Suspect]
     Active Substance: FEXOFENADINE\FEXOFENADINE HYDROCHLORIDE
     Indication: URTICARIA
     Route: 065

REACTIONS (10)
  - Muscle tightness [Recovered/Resolved]
  - Abdominal pain [Unknown]
  - Angina pectoris [Unknown]
  - Urinary retention [Recovered/Resolved]
  - Diarrhoea [Unknown]
  - Headache [Not Recovered/Not Resolved]
  - Fatigue [Unknown]
  - Intentional product misuse [Unknown]
  - Drug ineffective [Unknown]
  - Heart rate decreased [Recovered/Resolved]
